FAERS Safety Report 9100097 (Version 2)
Quarter: 2013Q1

REPORT INFORMATION
  Report Type: Report from Study
  Country: HU (occurrence: HU)
  Receive Date: 20130215
  Receipt Date: 20130319
  Transmission Date: 20140127
  Serious: Yes (Hospitalization, Other)
  Sender: FDA-Public Use
  Company Number: HU-ABBOTT-13P-076-1048350-00

PATIENT
  Age: 27 Year
  Sex: Female
  Weight: 75 kg

DRUGS (2)
  1. HUMIRA [Suspect]
     Indication: ANKYLOSING SPONDYLITIS
     Route: 058
     Dates: start: 20120912, end: 20121224
  2. HUMIRA [Suspect]
     Dates: start: 20130308

REACTIONS (2)
  - Thrombophlebitis [Recovered/Resolved]
  - Pain in extremity [Recovered/Resolved]
